FAERS Safety Report 23037953 (Version 6)
Quarter: 2023Q4

REPORT INFORMATION
  Report Type: Spontaneous
  Country: US (occurrence: US)
  Receive Date: 20231006
  Receipt Date: 20231201
  Transmission Date: 20240110
  Serious: Yes (Death, Hospitalization, Other)
  Sender: FDA-Public Use
  Company Number: US-002147023-NVSC2023US215734

PATIENT
  Sex: Male

DRUGS (2)
  1. LUTATHERA [Suspect]
     Active Substance: LUTETIUM OXODOTREOTIDE LU-177
     Indication: Neuroendocrine tumour
     Dosage: UNK
     Route: 065
     Dates: start: 20230621
  2. LUTATHERA [Suspect]
     Active Substance: LUTETIUM OXODOTREOTIDE LU-177
     Dosage: UNK
     Route: 065
     Dates: start: 20230816

REACTIONS (17)
  - Death [Fatal]
  - Dyspnoea exertional [Unknown]
  - Arthralgia [Unknown]
  - Abdominal pain upper [Unknown]
  - Nausea [Unknown]
  - Vomiting [Unknown]
  - Hyperkalaemia [Unknown]
  - Metastases to liver [Unknown]
  - Renal impairment [Unknown]
  - Inferior vena cava syndrome [Unknown]
  - Ill-defined disorder [Unknown]
  - Neoplasm progression [Unknown]
  - Hepatomegaly [Unknown]
  - Hepatic function abnormal [Unknown]
  - Oxygen saturation decreased [Unknown]
  - Blood creatinine abnormal [Unknown]
  - Oliguria [Unknown]
